FAERS Safety Report 5020477-0 (Version None)
Quarter: 2006Q2

REPORT INFORMATION
  Report Type: 
  Country: None (occurrence: None)
  Receive Date: 20060602
  Receipt Date: 20060524
  Transmission Date: 20061013
  Serious: Yes (Hospitalization, Other)
  Sender: FDA-Public Use
  Company Number: HQWYE735029NOV05

PATIENT
  Age: 54 Year
  Sex: Male

DRUGS (8)
  1. RAPAMUNE [Suspect]
     Indication: PROPHYLAXIS AGAINST TRANSPLANT REJECTION
     Dosage: 8 MG 1X PER 1 DAY ORAL; 6 MG 1X PER 1 DAY ORAL; 7 MG 1X PER 1 DAY ORAL
     Route: 048
     Dates: start: 20051111, end: 20051216
  2. RAPAMUNE [Suspect]
     Indication: PROPHYLAXIS AGAINST TRANSPLANT REJECTION
     Dosage: 8 MG 1X PER 1 DAY ORAL; 6 MG 1X PER 1 DAY ORAL; 7 MG 1X PER 1 DAY ORAL
     Route: 048
     Dates: start: 20051217, end: 20051220
  3. RAPAMUNE [Suspect]
     Indication: PROPHYLAXIS AGAINST TRANSPLANT REJECTION
     Dosage: 8 MG 1X PER 1 DAY ORAL; 6 MG 1X PER 1 DAY ORAL; 7 MG 1X PER 1 DAY ORAL
     Route: 048
     Dates: start: 20051221, end: 20060125
  4. MYCOPHENOLATE MOFETIL [Concomitant]
  5. SULFAMETHOXAZOLE + TRIMETHOPRIM [Concomitant]
  6. GANCICLOVIR [Concomitant]
  7. RANITIDINE [Concomitant]
  8. ARANESP [Concomitant]

REACTIONS (2)
  - DRUG INEFFECTIVE FOR UNAPPROVED INDICATION [None]
  - KIDNEY TRANSPLANT REJECTION [None]
